FAERS Safety Report 21558788 (Version 2)
Quarter: 2022Q4

REPORT INFORMATION
  Report Type: Spontaneous
  Country: US (occurrence: US)
  Receive Date: 20221107
  Receipt Date: 20221119
  Transmission Date: 20230113
  Serious: No
  Sender: FDA-Public Use
  Company Number: US-TEVA-2022-US-2822009

PATIENT
  Age: 59 Year
  Sex: Female

DRUGS (1)
  1. ADIPEX-P [Suspect]
     Active Substance: PHENTERMINE HYDROCHLORIDE
     Indication: Product used for unknown indication
     Dosage: 37.5 MILLIGRAM DAILY;
     Route: 065
     Dates: end: 202209

REACTIONS (1)
  - Dry mouth [Unknown]
